FAERS Safety Report 6196498-1 (Version None)
Quarter: 2009Q2

REPORT INFORMATION
  Report Type: 
  Country: None (occurrence: None)
  Receive Date: 20090520
  Receipt Date: 20090515
  Transmission Date: 20091009
  Serious: Yes (Hospitalization)
  Sender: FDA-Public Use
  Company Number: FR-JNJFOC-20090503520

PATIENT
  Age: 80 Year
  Sex: Male

DRUGS (6)
  1. OFLOXACIN [Suspect]
     Route: 048
  2. OFLOXACIN [Suspect]
     Indication: ARTHRITIS BACTERIAL
     Route: 048
  3. RIFADIN [Suspect]
     Indication: ARTHRITIS BACTERIAL
     Route: 042
  4. DALACINE [Suspect]
     Indication: ARTHRITIS BACTERIAL
     Route: 042
  5. ORBENIN CAP [Concomitant]
     Route: 042
  6. ORBENIN CAP [Concomitant]
     Indication: ARTHRITIS BACTERIAL
     Route: 042

REACTIONS (1)
  - ACUTE GENERALISED EXANTHEMATOUS PUSTULOSIS [None]
